FAERS Safety Report 7432485-0 (Version None)
Quarter: 2011Q2

REPORT INFORMATION
  Report Type: 
  Country: None (occurrence: None)
  Receive Date: 20110422
  Receipt Date: 20110420
  Transmission Date: 20111010
  Serious: Yes (Hospitalization)
  Sender: FDA-Public Use
  Company Number: US-B.I. PHARMACEUTICALS,INC./RIDGEFIELD-2011-BP-09829BP

PATIENT
  Age: 91 Year
  Sex: Female

DRUGS (7)
  1. LOSARTAN POTASSIUM [Concomitant]
  2. PRADAXA [Suspect]
     Indication: ATRIAL FIBRILLATION
     Dosage: 300 MG
     Dates: start: 20110228, end: 20110330
  3. LEVOTHROID [Concomitant]
  4. NITROGLYCERIN [Concomitant]
  5. PRADAXA [Suspect]
     Indication: CARDIAC FAILURE CONGESTIVE
  6. SIMVASTATIN [Concomitant]
  7. ISOPROPANOL [Concomitant]

REACTIONS (1)
  - GASTROINTESTINAL HAEMORRHAGE [None]
